FAERS Safety Report 18580620 (Version 2)
Quarter: 2021Q3

REPORT INFORMATION
  Report Type: Spontaneous
  Country: US (occurrence: US)
  Receive Date: 20201204
  Receipt Date: 20210802
  Transmission Date: 20211014
  Serious: Yes (Disabling, Other)
  Sender: FDA-Public Use
  Company Number: US-PURDUE-USA-2020-0164084

PATIENT
  Sex: Male

DRUGS (2)
  1. OXYCONTIN [Suspect]
     Active Substance: OXYCODONE HYDROCHLORIDE
     Indication: SPINAL OPERATION
     Dosage: 10 MG WITH AN UNKNOWN FREQUENCY
     Route: 048
  2. OXYCONTIN [Suspect]
     Active Substance: OXYCODONE HYDROCHLORIDE
     Dosage: 30 MG WITH AN UNKNOWN FREQUENCY
     Route: 048

REACTIONS (6)
  - Drug dependence [Unknown]
  - Restlessness [Unknown]
  - Disability [Unknown]
  - Headache [Unknown]
  - Anxiety [Unknown]
  - Insomnia [Unknown]
